FAERS Safety Report 22724903 (Version 7)
Quarter: 2024Q1

REPORT INFORMATION
  Report Type: Report from Study
  Country: CA (occurrence: CA)
  Receive Date: 20230719
  Receipt Date: 20240212
  Transmission Date: 20240410
  Serious: Yes (Hospitalization, Other)
  Sender: FDA-Public Use
  Company Number: CA-OTSUKA-2023_009674

PATIENT
  Sex: Male

DRUGS (1)
  1. ARIPIPRAZOLE [Suspect]
     Active Substance: ARIPIPRAZOLE
     Indication: Product used for unknown indication
     Dosage: 400 MG, EVERY 4 WEEKS (EVERY 28 DAYS)
     Route: 030

REACTIONS (10)
  - Brain injury [Unknown]
  - Loss of personal independence in daily activities [Unknown]
  - Acute psychosis [Unknown]
  - Drug abuse [Unknown]
  - Mental disorder [Unknown]
  - Paranoia [Unknown]
  - Amnesia [Unknown]
  - Psychotic disorder [Unknown]
  - Treatment noncompliance [Unknown]
  - Poor personal hygiene [Unknown]
